FAERS Safety Report 9354062 (Version 2)
Quarter: 2013Q3

REPORT INFORMATION
  Report Type: Spontaneous
  Country: US (occurrence: US)
  Receive Date: 20130618
  Receipt Date: 20130813
  Transmission Date: 20140515
  Serious: No
  Sender: FDA-Public Use
  Company Number: US-009507513-1306USA008015

PATIENT
  Age: 34 Year
  Sex: Female
  Weight: 68.27 kg

DRUGS (6)
  1. CLARITIN [Suspect]
     Indication: SEASONAL ALLERGY
     Dosage: UNK, QD
     Route: 048
     Dates: start: 201304, end: 201305
  2. CLARITIN [Suspect]
     Indication: SNEEZING
  3. CLARITIN [Suspect]
     Indication: NASAL CONGESTION
  4. CLARITIN [Suspect]
     Indication: NASAL DISCOMFORT
  5. CLARITIN [Suspect]
     Indication: MEDICAL OBSERVATION
  6. BENADRYL [Concomitant]
     Indication: HYPERSENSITIVITY
     Dosage: UNK, UNKNOWN

REACTIONS (1)
  - Drug ineffective [Unknown]
